FAERS Safety Report 21815523 (Version 1)
Quarter: 2023Q1

REPORT INFORMATION
  Report Type: Spontaneous
  Country: US (occurrence: None)
  Receive Date: 20230103
  Receipt Date: 20230103
  Transmission Date: 20230417
  Serious: Yes (Hospitalization)
  Sender: FDA-Public Use
  Company Number: None

PATIENT
  Age: 65 Year
  Sex: Male
  Weight: 107 kg

DRUGS (1)
  1. ECULIZUMAB [Suspect]
     Active Substance: ECULIZUMAB
     Indication: Myasthenia gravis
     Dosage: 1200MG  1 DAY Q 3 WKS IV?
     Route: 042
     Dates: start: 202101, end: 202211

REACTIONS (1)
  - Aplastic anaemia [None]

NARRATIVE: CASE EVENT DATE: 20221116
